FAERS Safety Report 19293912 (Version 1)
Quarter: 2021Q2

REPORT INFORMATION
  Report Type: Spontaneous
  Country: US (occurrence: US)
  Receive Date: 20210524
  Receipt Date: 20210524
  Transmission Date: 20210717
  Serious: Yes (Death)
  Sender: FDA-Public Use
  Company Number: None

PATIENT
  Age: 59 Year
  Sex: Male
  Weight: 157 kg

DRUGS (1)
  1. REMDESIVIR (EUA) (REMDESIVIR (EUA)) [Suspect]
     Active Substance: REMDESIVIR
     Indication: COVID-19
     Route: 042
     Dates: start: 20200929, end: 20200930

REACTIONS (7)
  - Renal impairment [None]
  - Pneumonia bacterial [None]
  - Pulseless electrical activity [None]
  - Hyperglycaemia [None]
  - Hypotension [None]
  - Cardiac arrest [None]
  - Acute respiratory failure [None]

NARRATIVE: CASE EVENT DATE: 20201007
